FAERS Safety Report 12118619 (Version 2)
Quarter: 2016Q1

REPORT INFORMATION
  Report Type: Spontaneous
  Country: US (occurrence: US)
  Receive Date: 20160226
  Receipt Date: 20160307
  Transmission Date: 20160526
  Serious: No
  Sender: FDA-Public Use
  Company Number: US-BAYER-2016-037593

PATIENT
  Age: 55 Year
  Sex: Female

DRUGS (1)
  1. ULTRAVIST [Suspect]
     Active Substance: IOPROMIDE
     Indication: IMAGING PROCEDURE
     Dosage: 87 ML, ONCE
     Dates: start: 20150723, end: 20150723

REACTIONS (3)
  - Nasal pruritus [None]
  - Sneezing [None]
  - Oral pruritus [None]

NARRATIVE: CASE EVENT DATE: 20150723
